FAERS Safety Report 8989835 (Version 1)
Quarter: 2012Q4

REPORT INFORMATION
  Report Type: 
  Country: US (occurrence: US)
  Receive Date: 20121228
  Receipt Date: 20121228
  Transmission Date: 20130627
  Serious: Yes (Other)
  Sender: FDA-Public Use
  Company Number: US-SANOFI-AVENTIS-2012SA092858

PATIENT
  Sex: Female

DRUGS (5)
  1. APIDRA SOLOSTAR [Suspect]
     Indication: TYPE 1 DIABETES MELLITUS
     Dosage: sliding scale QID
     Route: 058
     Dates: start: 2012
  2. APIDRA SOLOSTAR [Suspect]
     Indication: TYPE 1 DIABETES MELLITUS
     Dosage: sliding scale QID
     Route: 058
     Dates: start: 2012
  3. SOLOSTAR [Suspect]
     Indication: TYPE 1 DIABETES MELLITUS
     Dates: start: 2012
  4. SOLOSTAR [Suspect]
     Indication: TYPE 1 DIABETES MELLITUS
     Dates: start: 2012
  5. LANTUS [Suspect]
     Indication: TYPE 1 DIABETES MELLITUS
     Dosage: Dose of 24 Units in AM and 10 Units in Evening (PM)
     Route: 058

REACTIONS (2)
  - Cataract [Unknown]
  - Visual impairment [Unknown]
